FAERS Safety Report 8763652 (Version 1)
Quarter: 2012Q4

REPORT INFORMATION
  Report Type: 
  Country: DK (occurrence: GB)
  Receive Date: 20120828
  Receipt Date: 20120828
  Transmission Date: 20130627
  Serious: Yes (Disabling)
  Sender: FDA-Public Use
  Company Number: GB-FRI-1000038171

PATIENT
  Age: 27 Year
  Sex: Female
  Weight: 113 kg

DRUGS (1)
  1. CITALOPRAM [Suspect]
     Indication: DEPRESSION
     Dosage: 60 mg
     Route: 048
     Dates: start: 20080103, end: 20120701

REACTIONS (10)
  - Headache [Unknown]
  - Dizziness [Unknown]
  - Nausea [Recovered/Resolved with Sequelae]
  - Tremor [Recovering/Resolving]
  - Irritability [Recovering/Resolving]
  - Tearfulness [Recovering/Resolving]
  - Weight increased [Unknown]
  - Fatigue [Unknown]
  - Prescribed overdose [Recovered/Resolved]
  - Withdrawal syndrome [Unknown]
